FAERS Safety Report 15612596 (Version 1)
Quarter: 2018Q4

REPORT INFORMATION
  Report Type: Spontaneous
  Country: ZA (occurrence: ZA)
  Receive Date: 20181113
  Receipt Date: 20181113
  Transmission Date: 20190205
  Serious: Yes (Other)
  Sender: FDA-Public Use
  Company Number: ZA-SA-2018SA308240

PATIENT
  Sex: Female

DRUGS (4)
  1. ASPAVOR [Concomitant]
     Active Substance: ATORVASTATIN
     Dosage: 20 MG, UNK
     Route: 065
  2. ESCITALOPRAM [Concomitant]
     Active Substance: ESCITALOPRAM OXALATE
     Dosage: 5 MG
     Route: 065
  3. IVEDAL [Suspect]
     Active Substance: ZOLPIDEM TARTRATE
     Dosage: UNK, UNK
     Route: 065
  4. TELMISARTAN. [Concomitant]
     Active Substance: TELMISARTAN
     Dosage: 40 MG, UNK
     Route: 065

REACTIONS (1)
  - Cataract [Unknown]
